FAERS Safety Report 11046529 (Version 1)
Quarter: 2015Q2

REPORT INFORMATION
  Report Type: Spontaneous
  Country: US (occurrence: US)
  Receive Date: 20150420
  Receipt Date: 20150420
  Transmission Date: 20150821
  Serious: No
  Sender: FDA-Public Use
  Company Number: US-TEVA-460924USA

PATIENT
  Age: 75 Year
  Sex: Male
  Weight: 72.64 kg

DRUGS (3)
  1. FOLIC ACID. [Concomitant]
     Active Substance: FOLIC ACID
     Indication: CARDIAC DISORDER
     Dosage: .4 MILLIGRAM DAILY;
  2. PRAVASTATIN [Suspect]
     Active Substance: PRAVASTATIN\PRAVASTATIN SODIUM
     Indication: BLOOD CHOLESTEROL INCREASED
     Dosage: 20 MILLIGRAM DAILY;
  3. GARLIC. [Concomitant]
     Active Substance: GARLIC
     Indication: CARDIAC DISORDER
     Dosage: 1000 MILLIGRAM DAILY;

REACTIONS (4)
  - Back pain [Recovered/Resolved]
  - Blood test abnormal [Recovered/Resolved]
  - Muscle disorder [Recovered/Resolved]
  - Arthralgia [Recovered/Resolved]

NARRATIVE: CASE EVENT DATE: 20131018
